FAERS Safety Report 6100276 (Version 18)
Quarter: 2013Q3

REPORT INFORMATION
  Report Type: Spontaneous
  Country: US (occurrence: US)
  Receive Date: 20060807
  Receipt Date: 20130723
  Transmission Date: 20140515
  Serious: Yes (Death, Hospitalization, Other)
  Sender: FDA-Public Use
  Company Number: PHEH2006US09623

PATIENT
  Age: 72 Year
  Sex: Male
  Weight: 72.56 kg

DRUGS (39)
  1. ZOMETA [Suspect]
     Indication: BREAST CANCER METASTATIC
     Route: 042
  2. AREDIA [Suspect]
     Indication: BREAST CANCER METASTATIC
     Route: 042
  3. DOXYCYCLINE [Suspect]
  4. PROCARDIA [Concomitant]
     Indication: AORTIC VALVE INCOMPETENCE
  5. ZOCOR ^MERCK^ [Concomitant]
     Indication: BLOOD CHOLESTEROL
  6. AMICAR [Concomitant]
     Indication: HAEMORRHAGE
  7. ARIMIDEX ^ASTRAZENECA^ [Concomitant]
  8. LOPRESSOR [Concomitant]
  9. DIGOXIN [Concomitant]
  10. COUMADIN ^BOOTS^ [Concomitant]
  11. CALCIUM [Concomitant]
  12. MULTIVITAMINS [Concomitant]
  13. LOVENOX [Concomitant]
  14. CARTIA                                  /AUS/ [Concomitant]
  15. DEMADEX [Concomitant]
  16. ANTIVERT [Concomitant]
  17. TAXOL [Concomitant]
  18. ARIMIDEX [Concomitant]
  19. HYDROCODONE [Concomitant]
  20. OXYCODONE [Concomitant]
  21. CLINDAMYCIN [Concomitant]
  22. KETOCONAZOLE [Concomitant]
  23. GENTAK [Concomitant]
  24. EPOGEN [Concomitant]
  25. LANOXIN [Concomitant]
     Dosage: 0.25 MG, QD
  26. MORPHINE [Concomitant]
     Dosage: 2 MG, UNK
     Route: 042
  27. HYDROXYZINE PAMOATE [Concomitant]
     Dosage: 25 MG, QHS
     Route: 048
     Dates: start: 20060323
  28. EPOETIN ALFA [Concomitant]
     Dosage: 40000 U/ML, EVERY SEVEN DAY
     Route: 058
     Dates: start: 20060330
  29. SALINE [Concomitant]
     Dosage: 3 MG, Q12H
     Dates: start: 20060329
  30. PANTOPRAZOLE [Concomitant]
     Dosage: 40 MG, UNK
     Route: 048
     Dates: start: 20060324
  31. FUROSEMIDE [Concomitant]
     Dosage: 40 MG, UNK
     Route: 042
     Dates: start: 20060324
  32. EZETIMIBE [Concomitant]
     Dosage: 10 MG, UNK
     Route: 048
     Dates: start: 20060322
  33. POTASSIUM CHLORIDE [Concomitant]
     Dosage: 20 MEQ, UNK
     Route: 042
  34. ZOLOFT (SERTRALINE) [Concomitant]
     Dosage: 50 MG, UNK
     Route: 048
     Dates: start: 20060322
  35. TYLENOL [Concomitant]
  36. CODEINE [Concomitant]
     Dosage: 1 DF, EVERY 4-6 HR
     Route: 048
     Dates: start: 20060323
  37. DILAUDID [Concomitant]
     Dosage: 2 MG/ML, UNK
     Route: 042
     Dates: start: 20060321
  38. PROMETHAZINE [Concomitant]
     Dosage: 12.5 MG, Q8H
     Dates: start: 20060321
  39. ZOCOR ^DIECKMANN^ [Concomitant]

REACTIONS (95)
  - Death [Fatal]
  - Jaundice cholestatic [Unknown]
  - Asthenia [Unknown]
  - Blood bilirubin increased [Recovering/Resolving]
  - Chromaturia [Unknown]
  - Liver function test abnormal [Recovering/Resolving]
  - Aspartate aminotransferase increased [Recovering/Resolving]
  - Blood alkaline phosphatase increased [Recovering/Resolving]
  - Alanine aminotransferase increased [Recovering/Resolving]
  - Diarrhoea [Unknown]
  - Abdominal pain upper [Unknown]
  - Blood calcium decreased [Unknown]
  - Oesophageal ulcer [Unknown]
  - Oesophagitis [Unknown]
  - Aortic valve stenosis [Unknown]
  - Osteonecrosis of jaw [Unknown]
  - Alpha haemolytic streptococcal infection [Unknown]
  - Inflammation [Unknown]
  - Actinomycosis [Unknown]
  - Osteomyelitis [Unknown]
  - Abscess jaw [Unknown]
  - Gingivitis [Unknown]
  - Osteosclerosis [Unknown]
  - Injury [Unknown]
  - Pain [Unknown]
  - Anxiety [Unknown]
  - Wound [Unknown]
  - Oral discomfort [Unknown]
  - Oral discharge [Unknown]
  - Thrombocytopenia [Unknown]
  - Platelet count decreased [Unknown]
  - Haemorrhage [Recovering/Resolving]
  - Myelodysplastic syndrome [Unknown]
  - Spinal osteoarthritis [Unknown]
  - Ejection fraction decreased [Unknown]
  - Angina pectoris [Unknown]
  - Hepatic steatosis [Unknown]
  - Cholelithiasis [Unknown]
  - Asbestosis [Unknown]
  - Pleural fibrosis [Unknown]
  - Pulmonary fibrosis [Unknown]
  - Prostatomegaly [Unknown]
  - Blood creatinine decreased [Unknown]
  - Decreased appetite [Unknown]
  - Pulmonary mass [Unknown]
  - Hypercholesterolaemia [Unknown]
  - Palpitations [Unknown]
  - Tachycardia [Unknown]
  - Hyperlipidaemia [Unknown]
  - Back pain [Unknown]
  - Dyspnoea [Unknown]
  - Dehydration [Unknown]
  - Anaemia [Unknown]
  - Weight decreased [Unknown]
  - Dizziness [Unknown]
  - Vertigo [Unknown]
  - Prothrombin time prolonged [Unknown]
  - Bile duct stone [Unknown]
  - White blood cell count decreased [Unknown]
  - Rhinorrhoea [Unknown]
  - Dermatitis atopic [Unknown]
  - Chronic pigmented purpura [Unknown]
  - Body tinea [Unknown]
  - Intertrigo [Unknown]
  - Stasis dermatitis [Unknown]
  - Tinea pedis [Unknown]
  - Spinal disorder [Unknown]
  - Back disorder [Unknown]
  - Cardiac failure congestive [Unknown]
  - Tenosynovitis stenosans [Unknown]
  - Rotator cuff syndrome [Unknown]
  - Joint effusion [Unknown]
  - Salivary gland calculus [Unknown]
  - Kyphosis [Unknown]
  - Hiatus hernia [Unknown]
  - Fatigue [Unknown]
  - Dilatation atrial [Unknown]
  - Mitral valve incompetence [Unknown]
  - Tricuspid valve incompetence [Unknown]
  - Arteriosclerosis [Unknown]
  - Renal cyst [Unknown]
  - Granuloma [Unknown]
  - Chronic obstructive pulmonary disease [Unknown]
  - Atelectasis [Unknown]
  - Gangrene [Unknown]
  - Aortic valve disease [Unknown]
  - Hypertension [Unknown]
  - Atrial fibrillation [Unknown]
  - Spinal deformity [Unknown]
  - Pleural effusion [Unknown]
  - Ataxia [Unknown]
  - Osteoarthritis [Unknown]
  - Nocturia [Unknown]
  - Gait disturbance [Unknown]
  - Myocardial ischaemia [Unknown]
